FAERS Safety Report 23181507 (Version 1)
Quarter: 2023Q4

REPORT INFORMATION
  Report Type: Spontaneous
  Country: CA (occurrence: CA)
  Receive Date: 20231114
  Receipt Date: 20231114
  Transmission Date: 20240110
  Serious: Yes (Death, Disabling, Other)
  Sender: FDA-Public Use
  Company Number: CA-BRISTOL-MYERS SQUIBB COMPANY-2023-162221

PATIENT
  Age: 46 Year
  Sex: Male

DRUGS (2)
  1. THALOMID [Suspect]
     Active Substance: THALIDOMIDE
     Indication: Pulmonary tuberculosis
     Dosage: FREQ : ^42C/14D^
     Route: 048
     Dates: start: 20210826, end: 20210910
  2. THALOMID [Suspect]
     Active Substance: THALIDOMIDE
     Indication: Weight decreased

REACTIONS (1)
  - Tuberculosis [Fatal]
